FAERS Safety Report 4677813-4 (Version None)
Quarter: 2005Q2

REPORT INFORMATION
  Report Type: 
  Country: None (occurrence: None)
  Receive Date: 20050527
  Receipt Date: 20050527
  Transmission Date: 20051028
  Serious: No
  Sender: FDA-Public Use
  Company Number: None

PATIENT
  Sex: Female

DRUGS (2)
  1. BACTRIM [Suspect]
     Indication: INFECTION
     Dosage: 800/160 TABS  BID
     Dates: start: 20050324, end: 20050328
  2. ULTRAVATE [Concomitant]

REACTIONS (2)
  - HEADACHE [None]
  - PYREXIA [None]
